FAERS Safety Report 7300368-2 (Version None)
Quarter: 2011Q1

REPORT INFORMATION
  Report Type: 
  Country: None (occurrence: None)
  Receive Date: 20110217
  Receipt Date: 20110207
  Transmission Date: 20110831
  Serious: No
  Sender: FDA-Public Use
  Company Number: US-BIOGENIDEC-2011BI005547

PATIENT
  Age: 48 Year
  Sex: Male

DRUGS (6)
  1. TYSABRI [Suspect]
     Indication: MULTIPLE SCLEROSIS
     Route: 042
     Dates: start: 20101006
  2. TYSABRI [Suspect]
     Route: 042
     Dates: start: 20080722, end: 20100524
  3. AVONEX [Concomitant]
     Route: 030
     Dates: start: 20000802
  4. AVONEX [Concomitant]
     Indication: MULTIPLE SCLEROSIS
     Route: 030
     Dates: start: 20100601
  5. AVONEX [Concomitant]
     Route: 030
     Dates: start: 20070630
  6. AVONEX [Concomitant]
     Route: 030
     Dates: start: 20080701

REACTIONS (1)
  - INFLUENZA [None]
